FAERS Safety Report 23765231 (Version 2)
Quarter: 2025Q3

REPORT INFORMATION
  Report Type: Spontaneous
  Country: EU (occurrence: EU)
  Receive Date: 20240420
  Receipt Date: 20250801
  Transmission Date: 20251020
  Serious: Yes (Death)
  Sender: ACCORD
  Company Number: None

PATIENT
  Age: 90 Year
  Sex: Female

DRUGS (7)
  1. QUETIAPINE [Suspect]
     Active Substance: QUETIAPINE
     Indication: Aggression
     Dates: start: 20240306, end: 20240310
  2. ZUCLOPENTHIXOL [Suspect]
     Active Substance: ZUCLOPENTHIXOL
     Indication: Agitation
     Dates: start: 20240306, end: 20240310
  3. HYDROCHLOROTHIAZIDE\ZOFENOPRIL CALCIUM [Concomitant]
     Active Substance: HYDROCHLOROTHIAZIDE\ZOFENOPRIL CALCIUM
     Dates: end: 19700101
  4. LERCANIDIPINE HYDROCHLORIDE [Concomitant]
     Active Substance: LERCANIDIPINE HYDROCHLORIDE
  5. PANTOPRAZOLE [Concomitant]
     Active Substance: PANTOPRAZOLE
  6. ASPIRIN LYSINE [Concomitant]
     Active Substance: ASPIRIN LYSINE
  7. LEVOTHYROXINE SODIUM [Concomitant]
     Active Substance: LEVOTHYROXINE SODIUM
     Dates: end: 19700101

REACTIONS (1)
  - Respiratory depression [Fatal]

NARRATIVE: CASE EVENT DATE: 20240311
